FAERS Safety Report 18114411 (Version 2)
Quarter: 2020Q3

REPORT INFORMATION
  Report Type: Spontaneous
  Country: US (occurrence: US)
  Receive Date: 20200805
  Receipt Date: 20200814
  Transmission Date: 20201103
  Serious: Yes (Other)
  Sender: FDA-Public Use
  Company Number: US-SA-2020SA196508

PATIENT

DRUGS (1)
  1. BISACODYL. [Suspect]
     Active Substance: BISACODYL
     Indication: WEIGHT CONTROL
     Dosage: 80 MG, QD (16 TABLETS OF 5 MG)

REACTIONS (13)
  - Muscle strength abnormal [Recovering/Resolving]
  - Pelvic fracture [Recovering/Resolving]
  - Spinal pain [Recovering/Resolving]
  - Musculoskeletal stiffness [Recovering/Resolving]
  - Gait disturbance [Recovered/Resolved]
  - Arthralgia [Recovering/Resolving]
  - Oedema peripheral [Recovering/Resolving]
  - Vitamin D deficiency [Recovering/Resolving]
  - Tenderness [Recovering/Resolving]
  - Intentional product misuse [Unknown]
  - Fatigue [Recovering/Resolving]
  - Osteomalacia [Recovering/Resolving]
  - Muscle atrophy [Recovering/Resolving]
